FAERS Safety Report 23501218 (Version 1)
Quarter: 2024Q1

REPORT INFORMATION
  Report Type: Spontaneous
  Country: US (occurrence: None)
  Receive Date: 20240208
  Receipt Date: 20240208
  Transmission Date: 20240410
  Serious: Yes (Life-Threatening, Disabling, Other)
  Sender: FDA-Public Use
  Company Number: None

PATIENT
  Age: 59 Year
  Sex: Male
  Weight: 70.76 kg

DRUGS (1)
  1. VIIBRYD [Suspect]
     Active Substance: VILAZODONE HYDROCHLORIDE

REACTIONS (12)
  - Stress [None]
  - Job dissatisfaction [None]
  - Anxiety [None]
  - Irritability [None]
  - Insomnia [None]
  - Headache [None]
  - Agitation [None]
  - Confusional state [None]
  - Fatigue [None]
  - Morbid thoughts [None]
  - Suicidal ideation [None]
  - Self-injurious ideation [None]

NARRATIVE: CASE EVENT DATE: 20210501
